FAERS Safety Report 20460865 (Version 1)
Quarter: 2022Q1

REPORT INFORMATION
  Report Type: Spontaneous
  Country: US (occurrence: US)
  Receive Date: 20220211
  Receipt Date: 20220211
  Transmission Date: 20220423
  Serious: No
  Sender: FDA-Public Use
  Company Number: US-KARYOPHARM-2022KPT000098

PATIENT

DRUGS (15)
  1. XPOVIO [Suspect]
     Active Substance: SELINEXOR
     Indication: Plasma cell myeloma
     Dosage: 60 MG, QD
     Route: 048
     Dates: start: 202110
  2. ACYCLOVIR [Concomitant]
     Active Substance: ACYCLOVIR
  3. ATIVAN [Concomitant]
     Active Substance: LORAZEPAM
  4. VELCADE [Concomitant]
     Active Substance: BORTEZOMIB
  5. COLESTIPOL [Concomitant]
     Active Substance: COLESTIPOL
  6. DECADRON [Concomitant]
     Active Substance: DEXAMETHASONE
  7. EFFEXOR [Concomitant]
     Active Substance: VENLAFAXINE HYDROCHLORIDE
  8. EUCRISA [Concomitant]
     Active Substance: CRISABOROLE
  9. FLUOCINONIDE [Concomitant]
     Active Substance: FLUOCINONIDE
     Route: 061
  10. GABAPENTIN [Concomitant]
     Active Substance: GABAPENTIN
  11. MORPHINE [Concomitant]
     Active Substance: MORPHINE
  12. NEXIUM [Concomitant]
     Active Substance: ESOMEPRAZOLE MAGNESIUM
  13. ONDANSETRON [Concomitant]
     Active Substance: ONDANSETRON
  14. QUESTRAN [Concomitant]
     Active Substance: CHOLESTYRAMINE
  15. XARELTO [Concomitant]
     Active Substance: RIVAROXABAN

REACTIONS (1)
  - Dyspepsia [Unknown]
